FAERS Safety Report 22649010 (Version 1)
Quarter: 2023Q2

REPORT INFORMATION
  Report Type: Spontaneous
  Country: US (occurrence: None)
  Receive Date: 20230627
  Receipt Date: 20230627
  Transmission Date: 20230722
  Serious: Yes (Hospitalization)
  Sender: FDA-Public Use
  Company Number: None

PATIENT
  Sex: Female

DRUGS (1)
  1. DALFAMPRIDINE [Suspect]
     Active Substance: DALFAMPRIDINE
     Indication: Drug therapy
     Dosage: 10MG TWICE A DAY ORAL?
     Route: 048
     Dates: start: 20191031

REACTIONS (2)
  - Speech disorder [None]
  - Amnesia [None]
